FAERS Safety Report 8312343-X (Version None)
Quarter: 2012Q2

REPORT INFORMATION
  Report Type: 
  Country: None (occurrence: None)
  Receive Date: 20120425
  Receipt Date: 20120420
  Transmission Date: 20120825
  Serious: Yes (Hospitalization)
  Sender: FDA-Public Use
  Company Number: US-B.I. PHARMACEUTICALS,INC./RIDGEFIELD-2012-BP-09229BP

PATIENT
  Sex: Female

DRUGS (16)
  1. HYDROCODONE BITARTRATE [Concomitant]
     Indication: PAIN
  2. NOVOLOG [Concomitant]
     Indication: BLOOD GLUCOSE INCREASED
  3. NEBULIZER [Concomitant]
     Indication: CHRONIC OBSTRUCTIVE PULMONARY DISEASE
  4. BENICAR [Concomitant]
     Indication: HYPERTENSION
  5. PRADAXA [Suspect]
     Indication: ATRIAL FIBRILLATION
     Dosage: 300 MG
     Route: 048
     Dates: start: 20111101
  6. AMBIEN [Concomitant]
     Indication: INSOMNIA
  7. SYMBICORT [Concomitant]
     Indication: CHRONIC OBSTRUCTIVE PULMONARY DISEASE
  8. PRADAXA [Suspect]
     Indication: ATRIAL FLUTTER
  9. PROTONIX [Concomitant]
     Indication: GASTROINTESTINAL DISORDER
  10. HYDROCHLOROTHIAZIDE [Concomitant]
     Indication: FLUID RETENTION
  11. LEVEMIR [Concomitant]
     Indication: TYPE 1 DIABETES MELLITUS
  12. ZOFRAN [Concomitant]
     Indication: NAUSEA
  13. FLEXERIL [Concomitant]
     Indication: PAIN
  14. LYRICA [Suspect]
     Indication: NECK PAIN
  15. XANAX [Concomitant]
     Indication: ANXIETY
  16. XOPENEX HFA [Concomitant]
     Indication: CHRONIC OBSTRUCTIVE PULMONARY DISEASE

REACTIONS (7)
  - PERICARDITIS [None]
  - BACK PAIN [None]
  - FLUID RETENTION [None]
  - FEELING ABNORMAL [None]
  - PALPITATIONS [None]
  - HYPOAESTHESIA [None]
  - NECK PAIN [None]
